FAERS Safety Report 4866706-5 (Version None)
Quarter: 2005Q4

REPORT INFORMATION
  Report Type: 
  Country: None (occurrence: None)
  Receive Date: 20051221
  Receipt Date: 20051205
  Transmission Date: 20060501
  Serious: Yes (Other)
  Sender: FDA-Public Use
  Company Number: L05-FIN-05666-02

PATIENT
  Sex: Male

DRUGS (7)
  1. CARBAMAZEPINE [Suspect]
     Indication: EPILEPSY
     Dosage: 0.8 G TRANSPLACENTAL
     Route: 064
  2. CARBAMAZEPINE [Suspect]
     Indication: EPILEPSY
     Dosage: 1 G TRANSPLACENTAL
     Route: 064
  3. VIGABATRIN [Suspect]
     Indication: EPILEPSY
     Dosage: 2 G TRANSPLACENTAL
     Route: 064
  4. VIGABATRIN [Suspect]
     Indication: EPILEPSY
     Dosage: 3 G TRANSPLACENTAL
     Route: 064
  5. FOLIC ACID [Concomitant]
  6. VALPROIC ACID [Concomitant]
  7. PHENYTOIN [Concomitant]

REACTIONS (12)
  - APLASIA [None]
  - CAESAREAN SECTION [None]
  - DEXTROCARDIA [None]
  - DRUG EXPOSURE DURING PREGNANCY [None]
  - FACIAL DYSMORPHISM [None]
  - HYPOSPADIAS [None]
  - LOW SET EARS [None]
  - MILD MENTAL RETARDATION [None]
  - MULTIPLE CONGENITAL ABNORMALITIES [None]
  - PSYCHOMOTOR SKILLS IMPAIRED [None]
  - SIMPLE PARTIAL SEIZURES [None]
  - SYNOSTOSIS [None]
